FAERS Safety Report 15055153 (Version 4)
Quarter: 2019Q4

REPORT INFORMATION
  Report Type: Report from Study
  Country: ES (occurrence: ES)
  Receive Date: 20180622
  Receipt Date: 20191108
  Transmission Date: 20200122
  Serious: Yes (Death, Hospitalization)
  Sender: FDA-Public Use
  Company Number: ES-BAXTER-2018BAX017522

PATIENT
  Age: 69 Year
  Sex: Female
  Weight: 55 kg

DRUGS (12)
  1. RITUXIMAB. [Suspect]
     Active Substance: RITUXIMAB
     Indication: DIFFUSE LARGE B-CELL LYMPHOMA
     Dosage: 375 MG/M2, CYCLIC (DAY1), DOSAGE FORM: UNSPECIFIED
     Route: 042
     Dates: start: 20180404, end: 20180404
  2. ZOLPIDEM [Concomitant]
     Active Substance: ZOLPIDEM TARTRATE
     Indication: PROPHYLAXIS
     Dosage: 10 MG, 1X/DAY, DOSAGE FORM: UNSPECIFIED
     Route: 048
     Dates: start: 20180323
  3. PREDNISONE. [Suspect]
     Active Substance: PREDNISONE
     Indication: DIFFUSE LARGE B-CELL LYMPHOMA
     Dosage: 100 MG, CYCLIC DAYS 1-5
     Route: 048
     Dates: start: 20180404, end: 20180408
  4. NEULASTA [Concomitant]
     Active Substance: PEGFILGRASTIM
     Indication: INFECTION PROPHYLAXIS
     Dosage: AS PER PROTOCOL, UNK
     Route: 065
     Dates: start: 20180405
  5. ALLOPURINOL. [Concomitant]
     Active Substance: ALLOPURINOL
     Indication: PROPHYLAXIS
     Dosage: 300 MG, 1X/DAY, UNK, DOSAGE FORM: UNSPECIFIED
     Route: 048
     Dates: start: 20180405
  6. ONDANSETRON [Concomitant]
     Active Substance: ONDANSETRON
     Indication: PROPHYLAXIS OF NAUSEA AND VOMITING
     Dosage: 24 MG, 3X/DAY, DOSAGE FORM: UNSPECIFIED, CUMULATIVE DOSE: 216 MG
     Route: 042
     Dates: start: 20180404, end: 20180406
  7. GENOXAL [Suspect]
     Active Substance: CYCLOPHOSPHAMIDE
     Indication: DIFFUSE LARGE B-CELL LYMPHOMA
     Dosage: 750 MG/M2, DAY 1
     Route: 042
     Dates: start: 20180404, end: 20180404
  8. VINCRISTINE [Suspect]
     Active Substance: VINCRISTINE
     Indication: DIFFUSE LARGE B-CELL LYMPHOMA
     Dosage: 1.4 MG/M2, CYCLIC
     Route: 042
     Dates: start: 20180404, end: 20180404
  9. DOXORUBICIN HYDROCHLORIDE. [Suspect]
     Active Substance: DOXORUBICIN HYDROCHLORIDE
     Indication: DIFFUSE LARGE B-CELL LYMPHOMA
     Dosage: 50 MG/M2, CYCLIC DAY 1
     Route: 042
     Dates: start: 20180404, end: 20180404
  10. SEPTRIN [Concomitant]
     Active Substance: SULFAMETHOXAZOLE\TRIMETHOPRIM
     Indication: INFECTION PROPHYLAXIS
     Dosage: UNK, DOSAGE FORM: UNSPECIFIED
     Route: 048
     Dates: start: 20180405
  11. ACTOCORTIN [Concomitant]
     Indication: ERYTHEMA
     Dosage: UNK (ONCE), DOSAGE FORM: UNSPECIFIED; FOR ERYTHEMA
     Route: 042
     Dates: start: 20180404, end: 20180404
  12. ACTOCORTIN [Concomitant]
     Indication: PROPHYLAXIS OF NAUSEA AND VOMITING
     Dosage: FOR NAUSEA PROPHYLAXIS
     Route: 065

REACTIONS (4)
  - Intestinal obstruction [Not Recovered/Not Resolved]
  - Product use in unapproved indication [Unknown]
  - Off label use [Unknown]
  - Respiratory failure [Fatal]

NARRATIVE: CASE EVENT DATE: 20180404
